FAERS Safety Report 4674492-7 (Version None)
Quarter: 2005Q2

REPORT INFORMATION
  Report Type: 
  Country: None (occurrence: None)
  Receive Date: 20050526
  Receipt Date: 20050513
  Transmission Date: 20051028
  Serious: Yes (Other)
  Sender: FDA-Public Use
  Company Number: JP-JNJFOC-20050404756

PATIENT
  Sex: Male

DRUGS (13)
  1. ITRIZOLE [Suspect]
     Indication: PNEUMONIA ASPERGILLUS
     Route: 049
  2. CYCLOSPORINE [Interacting]
     Route: 065
  3. PREDNISOLONE [Concomitant]
     Indication: DRUG USE FOR UNKNOWN INDICATION
     Route: 049
  4. MYCOPHENOLATE MOFETIL [Concomitant]
  5. LANSOPRAZOLE [Concomitant]
  6. ACYCLOVIR [Concomitant]
  7. TRIMETHOPRIM [Concomitant]
  8. MICAFUNGIN SODIUM [Concomitant]
     Indication: PNEUMONIA ASPERGILLUS
     Route: 065
  9. VANCOMYCIN HYDROCHLORIDE [Concomitant]
     Route: 065
  10. VANCOMYCIN HYDROCHLORIDE [Concomitant]
     Route: 065
  11. AMPHOTERICIN B [Concomitant]
     Indication: PNEUMONIA ASPERGILLUS
     Dosage: 20-30MG/DAY
     Route: 065
  12. FOSFOMYCIN [Concomitant]
     Route: 042
  13. FOSFOMYCIN [Concomitant]
     Route: 042

REACTIONS (4)
  - DELIRIUM [None]
  - DRUG INTERACTION [None]
  - RENAL DISORDER [None]
  - RESTLESSNESS [None]
